FAERS Safety Report 9671813 (Version 1)
Quarter: 2013Q4

REPORT INFORMATION
  Report Type: Spontaneous
  Country: FR (occurrence: FR)
  Receive Date: 20131106
  Receipt Date: 20131106
  Transmission Date: 20140711
  Serious: Yes (Hospitalization)
  Sender: FDA-Public Use
  Company Number: FR-JNJFOC-20131102397

PATIENT
  Age: 68 Year
  Sex: Male

DRUGS (13)
  1. XARELTO [Suspect]
     Indication: PRODUCT USED FOR UNKNOWN INDICATION
     Route: 048
     Dates: end: 20130905
  2. XARELTO [Suspect]
     Indication: PRODUCT USED FOR UNKNOWN INDICATION
     Route: 048
     Dates: start: 20130128
  3. SALAZOPYRINE [Concomitant]
     Route: 065
  4. MONOTILDIEM [Concomitant]
     Route: 065
  5. CORDARONE [Concomitant]
     Route: 065
  6. ACTONEL [Concomitant]
     Route: 065
  7. DUPHALAC [Concomitant]
     Route: 065
  8. ATARAX [Concomitant]
     Route: 065
  9. XANAX [Concomitant]
     Route: 065
  10. DOLIPRANE [Concomitant]
     Route: 065
  11. SYMBICORT [Concomitant]
     Route: 065
  12. SPIRIVA [Concomitant]
     Route: 065
  13. INEXIUM [Concomitant]
     Route: 065

REACTIONS (1)
  - Anaemia [Recovered/Resolved]
